FAERS Safety Report 13638179 (Version 1)
Quarter: 2017Q2

REPORT INFORMATION
  Report Type: Spontaneous
  Country: CA (occurrence: CA)
  Receive Date: 20170609
  Receipt Date: 20170609
  Transmission Date: 20170830
  Serious: Yes (Other)
  Sender: FDA-Public Use
  Company Number: CA-ASTRAZENECA-2017SE58735

PATIENT
  Sex: Male

DRUGS (11)
  1. PLAQUENIL [Suspect]
     Active Substance: HYDROXYCHLOROQUINE SULFATE
     Indication: RHEUMATOID ARTHRITIS
     Route: 065
  2. ACTEMRA [Concomitant]
     Active Substance: TOCILIZUMAB
  3. METHOTREXATE. [Suspect]
     Active Substance: METHOTREXATE
     Indication: RHEUMATOID ARTHRITIS
     Route: 058
  4. GABAPENTIN. [Suspect]
     Active Substance: GABAPENTIN
     Indication: RHEUMATOID ARTHRITIS
     Route: 065
  5. FOLIC ACID. [Suspect]
     Active Substance: FOLIC ACID
     Indication: RHEUMATOID ARTHRITIS
     Route: 065
  6. ARAVA [Concomitant]
     Active Substance: LEFLUNOMIDE
     Route: 065
  7. GOLDEN SEAL [Concomitant]
     Active Substance: HERBALS\HOMEOPATHICS\GOLDENSEAL
  8. REMICADE [Concomitant]
     Active Substance: INFLIXIMAB
  9. PREDNISONE. [Suspect]
     Active Substance: PREDNISONE
     Indication: RHEUMATOID ARTHRITIS
     Route: 065
  10. SULFASALAZINE. [Concomitant]
     Active Substance: SULFASALAZINE
  11. NEXIUM [Suspect]
     Active Substance: ESOMEPRAZOLE MAGNESIUM
     Indication: RHEUMATOID ARTHRITIS
     Route: 048

REACTIONS (12)
  - Chest pain [Unknown]
  - Pain in extremity [Unknown]
  - Arthralgia [Unknown]
  - Pain in jaw [Unknown]
  - Bursa removal [Unknown]
  - Feeding disorder [Unknown]
  - Hand deformity [Unknown]
  - Neck pain [Unknown]
  - Nuclear magnetic resonance imaging abnormal [Unknown]
  - Rheumatoid arthritis [Unknown]
  - Aphonia [Unknown]
  - Arthrodesis [Unknown]
